FAERS Safety Report 8283572-9 (Version None)
Quarter: 2012Q2

REPORT INFORMATION
  Report Type: 
  Country: None (occurrence: None)
  Receive Date: 20120413
  Receipt Date: 20120406
  Transmission Date: 20120825
  Serious: Yes (Other)
  Sender: FDA-Public Use
  Company Number: AT-PFIZER INC-2012087288

PATIENT
  Age: 58 Year
  Sex: Male

DRUGS (2)
  1. EPINEPHRINE [Suspect]
     Indication: ANAPHYLACTOID REACTION
     Dosage: 0.3 MG, UNK
     Route: 030
  2. PREDNISOLONE [Concomitant]
     Dosage: 250 MG, UNK
     Route: 042

REACTIONS (3)
  - MYOCARDIAL ISCHAEMIA [None]
  - ATRIAL FIBRILLATION [None]
  - TROPONIN INCREASED [None]
